FAERS Safety Report 14170221 (Version 2)
Quarter: 2018Q1

REPORT INFORMATION
  Report Type: Spontaneous
  Country: DE (occurrence: DE)
  Receive Date: 20171108
  Receipt Date: 20180306
  Transmission Date: 20180508
  Serious: Yes (Other)
  Sender: FDA-Public Use
  Company Number: DE-PFIZER INC-2017476508

PATIENT
  Age: 57 Year
  Sex: Female

DRUGS (2)
  1. XALKORI [Suspect]
     Active Substance: CRIZOTINIB
     Dosage: 250 MG, TWO TIMES A DAY
     Dates: start: 20140221
  2. XALKORI [Suspect]
     Active Substance: CRIZOTINIB
     Dosage: 250 MG, ONCE A DAY
     Dates: end: 201601

REACTIONS (3)
  - Transaminases increased [Unknown]
  - Neoplasm progression [Unknown]
  - Brachiocephalic vein thrombosis [Unknown]

NARRATIVE: CASE EVENT DATE: 201403
